FAERS Safety Report 9042085 (Version 1)
Quarter: 2013Q1

REPORT INFORMATION
  Report Type: Spontaneous
  Country: US (occurrence: US)
  Receive Date: 20130129
  Receipt Date: 20130129
  Transmission Date: 20140127
  Serious: Yes (Hospitalization)
  Sender: FDA-Public Use
  Company Number: US-AMGEN-USASP2010004094

PATIENT
  Age: 69 Year
  Sex: Male

DRUGS (6)
  1. ENBREL [Suspect]
     Indication: RHEUMATOID ARTHRITIS
     Dates: start: 20100413
  2. PLAVIX                             /01220701/ [Concomitant]
  3. ASPIRIN [Concomitant]
  4. ALLOPURINOL [Concomitant]
  5. ACTOPLUS MET [Concomitant]
  6. HYZAAR                             /01284801/ [Concomitant]

REACTIONS (2)
  - Angina pectoris [Recovered/Resolved]
  - Cardiac failure congestive [Unknown]
